FAERS Safety Report 7951149-8 (Version None)
Quarter: 2011Q4

REPORT INFORMATION
  Report Type: 
  Country: None (occurrence: None)
  Receive Date: 20111123
  Receipt Date: 20111112
  Transmission Date: 20120403
  Serious: Yes (Other)
  Sender: FDA-Public Use
  Company Number: 2011SP053520

PATIENT
  Age: 91 Year
  Sex: Female

DRUGS (1)
  1. CLARITIN-D 24 HOUR [Suspect]
     Indication: LIP SWELLING
     Dosage: ;ONCE; PO
     Route: 048
     Dates: start: 20111112, end: 20111112

REACTIONS (3)
  - CONDITION AGGRAVATED [None]
  - THROAT IRRITATION [None]
  - LIP SWELLING [None]
